FAERS Safety Report 14033240 (Version 1)
Quarter: 2017Q4

REPORT INFORMATION
  Report Type: Spontaneous
  Country: US (occurrence: US)
  Receive Date: 20171002
  Receipt Date: 20171002
  Transmission Date: 20180321
  Serious: No
  Sender: FDA-Public Use
  Company Number: US-JAZZ-2017-US-010044

PATIENT
  Sex: Male

DRUGS (29)
  1. CARVEDILOL. [Concomitant]
     Active Substance: CARVEDILOL
  2. CELEBREX [Concomitant]
     Active Substance: CELECOXIB
  3. ASPIRIN                            /00002701/ [Concomitant]
     Active Substance: ASPIRIN
  4. XYREM [Suspect]
     Active Substance: SODIUM OXYBATE
     Indication: NARCOLEPSY
     Dosage: 2.25G, BID
     Route: 048
     Dates: start: 2015, end: 201508
  5. ABILIFY [Concomitant]
     Active Substance: ARIPIPRAZOLE
  6. LINZESS [Concomitant]
     Active Substance: LINACLOTIDE
  7. PRISTIQ EXTENDED-RELEASE [Concomitant]
     Active Substance: DESVENLAFAXINE SUCCINATE
  8. METHYLPREDNISOLONE. [Concomitant]
     Active Substance: METHYLPREDNISOLONE
  9. OMEGA-3                            /01866101/ [Concomitant]
     Active Substance: OMEGA-3 FATTY ACIDS
  10. PROPRANOLOL [Concomitant]
     Active Substance: PROPRANOLOL HYDROCHLORIDE
  11. XYREM [Suspect]
     Active Substance: SODIUM OXYBATE
     Dosage: DOSE ADJUSTMENTS
     Route: 048
     Dates: start: 201508, end: 201509
  12. REXULTI [Concomitant]
     Active Substance: BREXPIPRAZOLE
  13. ARTIFICIAL TEARS                   /00222401/ [Concomitant]
     Active Substance: PROPYLENE GLYCOL
  14. MELOXICAM. [Concomitant]
     Active Substance: MELOXICAM
  15. ALLERGY                            /00000402/ [Concomitant]
  16. DEXTROAMPHETAMINE                  /00016601/ [Concomitant]
     Active Substance: DEXTROAMPHETAMINE
  17. XYREM [Suspect]
     Active Substance: SODIUM OXYBATE
     Dosage: 4.5G, QD SECOND DOSE
     Route: 048
     Dates: start: 201509
  18. BUSPIRONE HCL [Concomitant]
     Active Substance: BUSPIRONE HYDROCHLORIDE
  19. LAMICTAL [Concomitant]
     Active Substance: LAMOTRIGINE
  20. CANASA [Concomitant]
     Active Substance: MESALAMINE
  21. XYREM [Suspect]
     Active Substance: SODIUM OXYBATE
     Dosage: 5.25 G, QD FIRST DOSE
     Route: 048
     Dates: start: 201509
  22. ALLEGRA ALLERGY [Concomitant]
     Active Substance: FEXOFENADINE HYDROCHLORIDE
  23. FLAXSEED [Concomitant]
     Active Substance: FLAX SEED
  24. DEXTROAMPHETAMINE                  /00016601/ [Concomitant]
     Active Substance: DEXTROAMPHETAMINE
  25. FISH OIL CONCENTRATE [Concomitant]
     Active Substance: FISH OIL
  26. B COMPLEX                          /00322001/ [Concomitant]
     Active Substance: CALCIUM PANTOTHENATE\CYANOCOBALAMIN\NIACINAMIDE\PYRIDOXINE HYDROCHLORIDE\RIBOFLAVIN\THIAMINE HYDROCHLORIDE
  27. METHYLPHENIDATE. [Concomitant]
     Active Substance: METHYLPHENIDATE
  28. CLARITIN [Concomitant]
     Active Substance: LORATADINE
  29. BOTOX [Concomitant]
     Active Substance: ONABOTULINUMTOXINA

REACTIONS (1)
  - Sacroiliitis [Unknown]
